FAERS Safety Report 21411477 (Version 20)
Quarter: 2025Q2

REPORT INFORMATION
  Report Type: Spontaneous
  Country: US (occurrence: US)
  Receive Date: 20221005
  Receipt Date: 20250402
  Transmission Date: 20250717
  Serious: Yes (Death, Life-Threatening, Hospitalization, Other)
  Sender: PFIZER
  Company Number: US-PFIZER INC-PV202200075706

PATIENT
  Age: 87 Year
  Sex: Female
  Weight: 61.224 kg

DRUGS (4)
  1. BOSULIF [Suspect]
     Active Substance: BOSUTINIB MONOHYDRATE
     Indication: Philadelphia positive chronic myeloid leukaemia
     Dosage: 200 MG, 2X/DAY, (2 TAB EVERY DAY)
     Route: 048
     Dates: start: 2021
  2. BOSULIF [Suspect]
     Active Substance: BOSUTINIB MONOHYDRATE
     Indication: Chronic myeloid leukaemia
     Route: 048
     Dates: start: 20230120
  3. BOSULIF [Suspect]
     Active Substance: BOSUTINIB MONOHYDRATE
     Dosage: 200 MG, DAILY, (2 TABLETS DAILY WITH FOOD)
     Route: 048
  4. LYRICA [Concomitant]
     Active Substance: PREGABALIN
     Route: 048

REACTIONS (9)
  - Death [Fatal]
  - Pneumonia [Unknown]
  - Gait disturbance [Recovered/Resolved]
  - Bradykinesia [Not Recovered/Not Resolved]
  - Bradyphrenia [Not Recovered/Not Resolved]
  - Asthenia [Not Recovered/Not Resolved]
  - Loss of consciousness [Unknown]
  - Nervousness [Unknown]
  - Pain [Unknown]

NARRATIVE: CASE EVENT DATE: 20230101
